FAERS Safety Report 26064186 (Version 1)
Quarter: 2025Q4

REPORT INFORMATION
  Report Type: Spontaneous
  Country: EU (occurrence: EU)
  Receive Date: 20251119
  Receipt Date: 20251119
  Transmission Date: 20260117
  Serious: Yes (Hospitalization)
  Sender: CHEPLAPHARM
  Company Number: None

PATIENT
  Age: 80 Year
  Sex: Female
  Weight: 58 kg

DRUGS (13)
  1. OLANZAPINE [Suspect]
     Active Substance: OLANZAPINE
     Indication: Aggression
     Dosage: DAILY DOSE: 5 MILLIGRAM
     Dates: start: 20250902, end: 20250908
  2. OLANZAPINE [Suspect]
     Active Substance: OLANZAPINE
     Indication: Agitation
     Dosage: DAILY DOSE: 5 MILLIGRAM
     Dates: start: 20250902, end: 20250908
  3. OLANZAPINE [Suspect]
     Active Substance: OLANZAPINE
     Indication: Patient elopement
     Dosage: DAILY DOSE: 5 MILLIGRAM
     Dates: start: 20250902, end: 20250908
  4. OLANZAPINE [Suspect]
     Active Substance: OLANZAPINE
     Indication: Aggression
     Dosage: DAILY DOSE: 10 MILLIGRAM
     Route: 048
     Dates: start: 20250909, end: 20250923
  5. OLANZAPINE [Suspect]
     Active Substance: OLANZAPINE
     Indication: Agitation
     Dosage: DAILY DOSE: 10 MILLIGRAM
     Route: 048
     Dates: start: 20250909, end: 20250923
  6. OLANZAPINE [Suspect]
     Active Substance: OLANZAPINE
     Indication: Patient elopement
     Dosage: DAILY DOSE: 10 MILLIGRAM
     Route: 048
     Dates: start: 20250909, end: 20250923
  7. RAMIPRIL [Concomitant]
     Active Substance: RAMIPRIL
     Dosage: 1 0 0
  8. Lercanidipinec [Concomitant]
     Dosage: DAILY DOSE: 10 MILLIGRAM
  9. URAPIDIL [Concomitant]
     Active Substance: URAPIDIL
     Dosage: 1-0-1?DAILY DOSE: 60 MILLIGRAM
  10. CHOLECALCIFEROL [Concomitant]
     Active Substance: CHOLECALCIFEROL
     Dosage: 50000 IU/2 ML/MONTH
  11. OXAZEPAM [Concomitant]
     Active Substance: OXAZEPAM
  12. MIRTAZAPINE [Concomitant]
     Active Substance: MIRTAZAPINE
  13. PANTOPRAZOLE [Concomitant]
     Active Substance: PANTOPRAZOLE

REACTIONS (12)
  - Adult failure to thrive [Not Recovered/Not Resolved]
  - Faecaloma [Not Recovered/Not Resolved]
  - Deep vein thrombosis [Not Recovered/Not Resolved]
  - Psychomotor disadaptation syndrome [Not Recovered/Not Resolved]
  - Asthenia [Not Recovered/Not Resolved]
  - Dehydration [Not Recovered/Not Resolved]
  - Malnutrition [Not Recovered/Not Resolved]
  - Weight decreased [Not Recovered/Not Resolved]
  - Decubitus ulcer [Not Recovered/Not Resolved]
  - Muscle atrophy [Not Recovered/Not Resolved]
  - Bedridden [Not Recovered/Not Resolved]
  - Off label use [Recovered/Resolved]

NARRATIVE: CASE EVENT DATE: 20250902
